FAERS Safety Report 5395053-0 (Version None)
Quarter: 2007Q3

REPORT INFORMATION
  Report Type: 
  Country: None (occurrence: None)
  Receive Date: 20070724
  Receipt Date: 20070718
  Transmission Date: 20080115
  Serious: Yes (Hospitalization)
  Sender: FDA-Public Use
  Company Number: CN-BRISTOL-MYERS SQUIBB COMPANY-13633177

PATIENT
  Age: 23 Year
  Sex: Male
  Weight: 64 kg

DRUGS (5)
  1. CYCLOPHOSPHAMIDE [Suspect]
     Indication: LUPUS NEPHRITIS
     Route: 042
     Dates: start: 20060822, end: 20060822
  2. MYCOPHENOLATE MOFETIL [Suspect]
     Indication: LUPUS NEPHRITIS
     Route: 048
     Dates: start: 20060919, end: 20061124
  3. AZATHIOPRINE [Suspect]
     Route: 048
     Dates: start: 20060919, end: 20061124
  4. PREDNISONE [Suspect]
     Route: 048
     Dates: start: 20060905, end: 20061130
  5. CALCIUM CHLORIDE [Concomitant]
     Dates: start: 20060411

REACTIONS (1)
  - WHITE BLOOD CELL COUNT DECREASED [None]
